FAERS Safety Report 21448320 (Version 5)
Quarter: 2022Q4

REPORT INFORMATION
  Report Type: Spontaneous
  Country: US (occurrence: US)
  Receive Date: 20221013
  Receipt Date: 20221109
  Transmission Date: 20230112
  Serious: No
  Sender: FDA-Public Use
  Company Number: US-BRISTOL-MYERS SQUIBB COMPANY-2022-117646

PATIENT
  Age: 77 Year
  Sex: Male

DRUGS (1)
  1. REVLIMID [Suspect]
     Active Substance: LENALIDOMIDE
     Indication: Follicular lymphoma
     Dosage: TAKE 1 CAPSULE BY MOUTH WHOLE W/ WATER AT THE SAME TIME ON DAYS 1-21 OF EACH 28 DAY CYCLE.
     Route: 048
     Dates: start: 20220921, end: 20221003

REACTIONS (3)
  - Mouth ulceration [Recovering/Resolving]
  - Rash [Recovered/Resolved]
  - Product administration interrupted [Recovered/Resolved]
